FAERS Safety Report 6305001-4 (Version None)
Quarter: 2009Q3

REPORT INFORMATION
  Report Type: 
  Country: None (occurrence: None)
  Receive Date: 20090811
  Receipt Date: 20090804
  Transmission Date: 20100115
  Serious: Yes (Death)
  Sender: FDA-Public Use
  Company Number: KR-ELI_LILLY_AND_COMPANY-KR200908001311

PATIENT

DRUGS (2)
  1. GEMZAR [Suspect]
     Indication: PANCREATIC CARCINOMA
     Dosage: 1250 MG/M2, DAY 1 AND 8 EVERY 3 WEEKS
     Route: 042
  2. TS-1 [Concomitant]
     Indication: PANCREATIC CARCINOMA
     Dosage: 40 MG/M2, 2/D
     Route: 048

REACTIONS (2)
  - FEBRILE NEUTROPENIA [None]
  - PNEUMONIA [None]
